FAERS Safety Report 10385364 (Version 1)
Quarter: 2014Q3

REPORT INFORMATION
  Report Type: Spontaneous
  Country: US (occurrence: None)
  Receive Date: 20140804
  Receipt Date: 20140804
  Transmission Date: 20150326
  Serious: Yes (Death)
  Sender: FDA-Public Use
  Company Number: 1713747-2014-99914

PATIENT
  Age: 72 Year
  Sex: Male

DRUGS (16)
  1. DIALYSIS MACHINE 2008K MEDICATIONS [Concomitant]
  2. LANTUS INSULIN [Concomitant]
  3. ATORVASTATIN [Concomitant]
     Active Substance: ATORVASTATIN
  4. CALCIUM ALCETATE [Concomitant]
  5. ERGOCALCIFERFOL [Concomitant]
  6. GLIPIZIDE. [Concomitant]
     Active Substance: GLIPIZIDE
  7. LACTOBACILLIUS ACIDOPHILUS [Concomitant]
  8. FRESENIUS 2008 TWISTER REVERSE FLOW OPTIFLUX 100NRE DIALYZER [Concomitant]
  9. WARFARIN [Concomitant]
     Active Substance: WARFARIN
  10. 0.9% SODIUM CHLORIDE [Suspect]
     Active Substance: SODIUM CHLORIDE
     Indication: HAEMODIALYSIS
     Dosage: 3/WEEK UPARM BRACK
     Dates: start: 20120511
  11. DULCOLAX [Concomitant]
     Active Substance: BISACODYL OR DOCUSATE SODIUM
  12. HUMALOG [Concomitant]
     Active Substance: INSULIN LISPRO
  13. ADVAIR DISKUS [Concomitant]
     Active Substance: FLUTICASONE PROPIONATE\SALMETEROL XINAFOATE
  14. SPIRIVA [Concomitant]
     Active Substance: TIOTROPIUM BROMIDE MONOHYDRATE
  15. ALBUTEROL. [Concomitant]
     Active Substance: ALBUTEROL
  16. FAMOTIDINE. [Concomitant]
     Active Substance: FAMOTIDINE

REACTIONS (3)
  - Muscle spasms [None]
  - Unresponsive to stimuli [None]
  - Cardio-respiratory arrest [None]

NARRATIVE: CASE EVENT DATE: 20120511
